FAERS Safety Report 4425283-3 (Version None)
Quarter: 2004Q3

REPORT INFORMATION
  Report Type: 
  Country: None (occurrence: None)
  Receive Date: 20040809
  Receipt Date: 20030630
  Transmission Date: 20050211
  Serious: No
  Sender: FDA-Public Use
  Company Number: US-JNJFOC-20030704554

PATIENT
  Age: 42 Year
  Sex: Female

DRUGS (1)
  1. IMODIUM A-D [Suspect]
     Indication: DIARRHOEA
     Dosage: 4 MG, 1 IN 1 AS NECESSARY, ORAL
     Route: 048

REACTIONS (1)
  - DRUG INEFFECTIVE [None]
